FAERS Safety Report 15240309 (Version 2)
Quarter: 2018Q3

REPORT INFORMATION
  Report Type: Spontaneous
  Country: US (occurrence: US)
  Receive Date: 20180804
  Receipt Date: 20180821
  Transmission Date: 20181010
  Serious: Yes (Hospitalization, Other)
  Sender: FDA-Public Use
  Company Number: US-ACCORD-070252

PATIENT
  Age: 56 Year
  Sex: Female

DRUGS (2)
  1. MITOMYCIN. [Suspect]
     Active Substance: MITOMYCIN
     Indication: RECTAL CANCER
  2. FLUOROURACIL. [Suspect]
     Active Substance: FLUOROURACIL
     Indication: RECTAL CANCER
     Dosage: 4000MG PER M2 IS EQUAL TO 6320MG?ADMINISTERED OVER 4DAYS FROM DAY 1 TO DAY 4

REACTIONS (7)
  - Thrombocytopenia [Recovered/Resolved]
  - Off label use [Unknown]
  - Nausea [Recovered/Resolved]
  - Overdose [Unknown]
  - Mucosal inflammation [Unknown]
  - Colitis [Recovered/Resolved]
  - Neutropenia [Recovered/Resolved]
